FAERS Safety Report 16697999 (Version 2)
Quarter: 2019Q3

REPORT INFORMATION
  Report Type: Spontaneous
  Country: US (occurrence: US)
  Receive Date: 20190813
  Receipt Date: 20190816
  Transmission Date: 20191004
  Serious: No
  Sender: FDA-Public Use
  Company Number: US-009507513-1908USA004924

PATIENT
  Age: 27 Year
  Sex: Female
  Weight: 104.31 kg

DRUGS (1)
  1. NEXPLANON [Suspect]
     Active Substance: ETONOGESTREL
     Dosage: 1 DOSAGE FORM EVERY 3 YEARS
     Route: 059
     Dates: start: 2015

REACTIONS (3)
  - Complication associated with device [Not Recovered/Not Resolved]
  - Incorrect product administration duration [Unknown]
  - Weight increased [Unknown]

NARRATIVE: CASE EVENT DATE: 2015
